FAERS Safety Report 18455617 (Version 2)
Quarter: 2020Q4

REPORT INFORMATION
  Report Type: Spontaneous
  Country: US (occurrence: US)
  Receive Date: 20201102
  Receipt Date: 20201202
  Transmission Date: 20210114
  Serious: No
  Sender: FDA-Public Use
  Company Number: US-SA-2020SA306351

PATIENT

DRUGS (1)
  1. DUPIXENT [Suspect]
     Active Substance: DUPILUMAB
     Dosage: 300 MG, QOW (300 MG/2ML)
     Dates: start: 20200903

REACTIONS (3)
  - Epistaxis [Recovered/Resolved]
  - Eye pruritus [Unknown]
  - Malaise [Unknown]

NARRATIVE: CASE EVENT DATE: 2020
